FAERS Safety Report 5044992-9 (Version None)
Quarter: 2006Q3

REPORT INFORMATION
  Report Type: 
  Country: None (occurrence: None)
  Receive Date: 20060705
  Receipt Date: 20060612
  Transmission Date: 20061208
  Serious: Yes (Death)
  Sender: FDA-Public Use
  Company Number: US200606002932

PATIENT
  Sex: Male

DRUGS (1)
  1. HUMALOG [Suspect]
     Dates: end: 20060415

REACTIONS (1)
  - DEATH [None]
